FAERS Safety Report 7031602-4 (Version None)
Quarter: 2010Q4

REPORT INFORMATION
  Report Type: 
  Country: None (occurrence: None)
  Receive Date: 20101006
  Receipt Date: 20101006
  Transmission Date: 20110411
  Serious: Yes (Life-Threatening, Other)
  Sender: FDA-Public Use
  Company Number: None

PATIENT
  Age: 82 Year
  Sex: Female

DRUGS (4)
  1. DIOVAN [Suspect]
     Indication: HYPERTENSION
     Dosage: 320 MG ONCE A DAY BY MOUTH FOR YEARS
     Route: 048
     Dates: start: 20070101, end: 20100701
  2. DOGOXIN [Concomitant]
  3. GLYBURIDE [Concomitant]
  4. COUMADIN [Concomitant]

REACTIONS (1)
  - HYPOTENSION [None]
